FAERS Safety Report 10389083 (Version 5)
Quarter: 2017Q2

REPORT INFORMATION
  Report Type: Spontaneous
  Country: US (occurrence: US)
  Receive Date: 20140817
  Receipt Date: 20170417
  Transmission Date: 20170829
  Serious: Yes (Hospitalization, Other)
  Sender: FDA-Public Use
  Company Number: US-009507513-1408USA005609

PATIENT
  Sex: Female

DRUGS (9)
  1. FOSAMAX [Suspect]
     Active Substance: ALENDRONATE SODIUM
     Indication: OSTEOPOROSIS
     Dosage: 10 MG, QD
     Route: 048
     Dates: start: 19990304, end: 200802
  2. FOSAMAX [Suspect]
     Active Substance: ALENDRONATE SODIUM
     Indication: OSTEOPOROSIS PROPHYLAXIS
  3. VITAMIN D [Concomitant]
     Active Substance: CHOLECALCIFEROL
     Indication: ROUTINE HEALTH MAINTENANCE
     Dosage: 400 IU, UNK
     Route: 065
     Dates: start: 1990
  4. FOSAMAX [Suspect]
     Active Substance: ALENDRONATE SODIUM
     Indication: OSTEOPOROSIS
     Dosage: 70 MG, QW
     Route: 048
     Dates: end: 200802
  5. ALENDRONATE SODIUM. [Suspect]
     Active Substance: ALENDRONATE SODIUM
     Indication: OSTEOPOROSIS
  6. VITAMINS (UNSPECIFIED) [Concomitant]
     Active Substance: VITAMINS
     Indication: ROUTINE HEALTH MAINTENANCE
     Dosage: UNK
     Route: 065
     Dates: start: 1990
  7. CALCIUM (UNSPECIFIED) [Concomitant]
     Active Substance: CALCIUM
     Indication: ROUTINE HEALTH MAINTENANCE
     Dosage: 600 MG, UNK
     Route: 065
     Dates: start: 1990
  8. FOSAMAX [Suspect]
     Active Substance: ALENDRONATE SODIUM
     Indication: OSTEOPOROSIS PROPHYLAXIS
  9. ALENDRONATE SODIUM. [Suspect]
     Active Substance: ALENDRONATE SODIUM
     Indication: OSTEOPOROSIS PROPHYLAXIS
     Dosage: 70 MG, QW
     Route: 048
     Dates: start: 200802, end: 20120621

REACTIONS (13)
  - Spinal operation [Unknown]
  - Breast hyperplasia [Unknown]
  - Osteoporosis [Unknown]
  - Osteoarthritis [Unknown]
  - Arthralgia [Unknown]
  - Arthritis [Unknown]
  - Femur fracture [Recovered/Resolved]
  - Invasive lobular breast carcinoma [Unknown]
  - Anaemia postoperative [Unknown]
  - Bone disorder [Unknown]
  - Pain in extremity [Unknown]
  - Foot fracture [Unknown]
  - Bursitis [Unknown]

NARRATIVE: CASE EVENT DATE: 20090208
